FAERS Safety Report 13050603 (Version 3)
Quarter: 2017Q1

REPORT INFORMATION
  Report Type: Spontaneous
  Country: FR (occurrence: FR)
  Receive Date: 20161221
  Receipt Date: 20170222
  Transmission Date: 20170428
  Serious: Yes (Other)
  Sender: FDA-Public Use
  Company Number: FR-ELI_LILLY_AND_COMPANY-FR201612005400

PATIENT
  Age: 64 Year
  Sex: Female

DRUGS (5)
  1. PANTOPRAZOLE [Concomitant]
     Active Substance: PANTOPRAZOLE SODIUM
     Dosage: 1 DF, QD
     Route: 048
  2. ATORVASTATIN [Concomitant]
     Active Substance: ATORVASTATIN
     Dosage: 1 DF, QD
     Route: 048
  3. NOVONORM [Concomitant]
     Active Substance: REPAGLINIDE
     Dosage: 3 DF, QD
     Route: 048
  4. TRULICITY [Suspect]
     Active Substance: DULAGLUTIDE
     Dosage: 1.5 MG, WEEKLY (1/W)
     Route: 065
  5. TRULICITY [Suspect]
     Active Substance: DULAGLUTIDE
     Indication: TYPE 2 DIABETES MELLITUS
     Dosage: 0.75 MG, WEEKLY (1/W)
     Route: 065
     Dates: start: 20160712

REACTIONS (11)
  - Drug dispensing error [Unknown]
  - Drug ineffective [Unknown]
  - Generalised oedema [Unknown]
  - Nausea [Unknown]
  - Fatigue [Unknown]
  - Drug prescribing error [Unknown]
  - Respiratory disorder [Unknown]
  - Stress [Unknown]
  - Hypoglycaemia [Unknown]
  - Vertigo [Unknown]
  - Depressed mood [Unknown]

NARRATIVE: CASE EVENT DATE: 20160712
